FAERS Safety Report 6888493-1 (Version None)
Quarter: 2010Q3

REPORT INFORMATION
  Report Type: 
  Country: None (occurrence: None)
  Receive Date: 20100730
  Receipt Date: 20100719
  Transmission Date: 20110219
  Serious: Yes (Other)
  Sender: FDA-Public Use
  Company Number: PHFR2010GB01372

PATIENT
  Sex: Male

DRUGS (1)
  1. CLOZARIL [Suspect]
     Indication: SCHIZOPHRENIA
     Dosage: UNK
     Route: 048
     Dates: start: 20040113, end: 20100521

REACTIONS (4)
  - DRUG WITHDRAWAL SYNDROME [None]
  - MENTAL DISORDER [None]
  - PLATELET COUNT DECREASED [None]
  - TARDIVE DYSKINESIA [None]
